FAERS Safety Report 4423857-7 (Version None)
Quarter: 2004Q3

REPORT INFORMATION
  Report Type: 
  Country: None (occurrence: None)
  Receive Date: 20040715
  Receipt Date: 20040309
  Transmission Date: 20050211
  Serious: Yes (Other)
  Sender: FDA-Public Use
  Company Number: 2004199464US

PATIENT
  Age: 84 Year
  Sex: Male
  Weight: 77.1 kg

DRUGS (6)
  1. CELEBREX [Suspect]
     Dates: start: 20000601, end: 20030601
  2. ENALAPRIL MALEATE [Concomitant]
  3. LEVOTHYROID [Concomitant]
  4. DOXEPIN (DOXEPIN) [Concomitant]
  5. LIPITOR [Concomitant]
  6. NEURONTIN [Concomitant]

REACTIONS (2)
  - TACHYCARDIA [None]
  - UPPER GASTROINTESTINAL HAEMORRHAGE [None]
